FAERS Safety Report 14896085 (Version 7)
Quarter: 2018Q4

REPORT INFORMATION
  Report Type: Report from Study
  Country: US (occurrence: US)
  Receive Date: 20180515
  Receipt Date: 20181008
  Transmission Date: 20190204
  Serious: Yes (Other)
  Sender: FDA-Public Use
  Company Number: US-PFIZER INC-2018130607

PATIENT
  Age: 71 Year
  Sex: Female

DRUGS (3)
  1. IBRANCE [Suspect]
     Active Substance: PALBOCICLIB
     Indication: BREAST CANCER FEMALE
     Dosage: 125 MG, 1X/DAY
     Route: 048
     Dates: start: 20180327
  2. IBRANCE [Suspect]
     Active Substance: PALBOCICLIB
     Dosage: 100 MG, CYCLIC ((2 WEEKS ON, 2 WEEKS OFF,QD )
     Route: 048
     Dates: start: 201807
  3. IBRANCE [Suspect]
     Active Substance: PALBOCICLIB
     Dosage: 100 MG, CYCLIC (QD-3 WEEKS ON, 1 WEEK OFF)
     Route: 048
     Dates: start: 201809

REACTIONS (14)
  - Pneumonia [Unknown]
  - Chills [Unknown]
  - Cough [Unknown]
  - Blood pressure increased [Unknown]
  - Asthenia [Unknown]
  - Weight decreased [Unknown]
  - Visual field defect [Unknown]
  - Decreased appetite [Unknown]
  - White blood cell count decreased [Not Recovered/Not Resolved]
  - Breast pain [Recovering/Resolving]
  - Abscess drainage [Unknown]
  - Blood potassium increased [Unknown]
  - Lethargy [Unknown]
  - Nasal congestion [Unknown]

NARRATIVE: CASE EVENT DATE: 2018
